FAERS Safety Report 9698565 (Version 1)
Quarter: 2013Q4

REPORT INFORMATION
  Report Type: Spontaneous
  Country: JP (occurrence: JP)
  Receive Date: 20131120
  Receipt Date: 20131120
  Transmission Date: 20140711
  Serious: Yes (Hospitalization)
  Sender: FDA-Public Use
  Company Number: JP-GLAXOSMITHKLINE-B0914516A

PATIENT
  Age: 37 Year
  Sex: Female

DRUGS (4)
  1. LAMICTAL [Suspect]
     Indication: PARTIAL SEIZURES WITH SECONDARY GENERALISATION
     Dosage: 25MG ALTERNATE DAYS
     Route: 048
     Dates: start: 20130709, end: 20130722
  2. LAMICTAL [Suspect]
     Indication: PARTIAL SEIZURES WITH SECONDARY GENERALISATION
     Dosage: 25MG PER DAY
     Route: 048
     Dates: start: 20130723, end: 20130805
  3. EXCEGRAN [Concomitant]
     Dosage: 100MG TWICE PER DAY
     Route: 048
  4. SELENICA-R [Concomitant]
     Dosage: 200MG THREE TIMES PER DAY
     Route: 048

REACTIONS (10)
  - Drug reaction with eosinophilia and systemic symptoms [Recovered/Resolved]
  - Rash [Recovering/Resolving]
  - Cheilitis [Recovering/Resolving]
  - Erythema [Recovering/Resolving]
  - Blister [Recovering/Resolving]
  - Toxic skin eruption [Recovering/Resolving]
  - Skin disorder [Recovering/Resolving]
  - Pyrexia [Recovering/Resolving]
  - Hepatic function abnormal [Recovering/Resolving]
  - Oral mucosa erosion [Recovering/Resolving]
